FAERS Safety Report 21622941 (Version 1)
Quarter: 2022Q4

REPORT INFORMATION
  Report Type: Report from Study
  Country: US (occurrence: US)
  Receive Date: 20221121
  Receipt Date: 20221121
  Transmission Date: 20230113
  Serious: No
  Sender: FDA-Public Use
  Company Number: US-ABBVIE-4190178

PATIENT
  Sex: Male
  Weight: 81.646 kg

DRUGS (12)
  1. HUMIRA [Suspect]
     Active Substance: ADALIMUMAB
     Indication: Crohn^s disease
     Route: 058
     Dates: start: 2021
  2. Bergamot [Concomitant]
     Indication: Supplementation therapy
  3. LOSARTAN [Concomitant]
     Active Substance: LOSARTAN
     Indication: Blood pressure measurement
     Dosage: 100 MG
  4. FISH OIL [Concomitant]
     Active Substance: FISH OIL
     Indication: Supplementation therapy
  5. HERBALS\TURMERIC [Concomitant]
     Active Substance: HERBALS\TURMERIC
     Indication: Supplementation therapy
  6. FEXOFENADINE [Concomitant]
     Active Substance: FEXOFENADINE HYDROCHLORIDE
     Indication: Hypersensitivity
  7. VITAMIN B12 [Concomitant]
     Active Substance: CYANOCOBALAMIN
     Indication: Supplementation therapy
  8. PROBIOTICS NOS [Concomitant]
     Active Substance: PROBIOTICS NOS
     Indication: Crohn^s disease
  9. ASPIRIN [Concomitant]
     Active Substance: ASPIRIN
     Indication: Blood pressure management
  10. PENTASA [Concomitant]
     Active Substance: MESALAMINE
     Indication: Crohn^s disease
  11. VITAMIN B3 [Concomitant]
     Active Substance: NIACIN
     Indication: Supplementation therapy
  12. PANTOPRAZOLE [Concomitant]
     Active Substance: PANTOPRAZOLE
     Indication: Gastrointestinal disorder therapy
     Dosage: 40 MG

REACTIONS (1)
  - Psoriasis [Not Recovered/Not Resolved]
